FAERS Safety Report 19868634 (Version 2)
Quarter: 2021Q3

REPORT INFORMATION
  Report Type: Report from Study
  Country: None (occurrence: ES)
  Receive Date: 20210921
  Receipt Date: 20210929
  Transmission Date: 20211014
  Serious: Yes (Death, Other)
  Sender: FDA-Public Use
  Company Number: ES-ABBVIE-21K-144-4083552-00

PATIENT
  Age: 79 Year
  Sex: Female

DRUGS (4)
  1. DUODOPA [Suspect]
     Active Substance: CARBIDOPA\LEVODOPA
  2. FRESUBIN [Concomitant]
     Active Substance: AMINO ACIDS\DEXTROSE\ELECTROLYTES NOS\SOYBEAN OIL\VITAMINS
     Indication: PRODUCT USED FOR UNKNOWN INDICATION
     Route: 048
  3. DUODOPA [Suspect]
     Active Substance: CARBIDOPA\LEVODOPA
     Indication: PARKINSON^S DISEASE
     Dosage: MORNING DOSE 15+3 ML, CONTINUOUS 5.2 ML/H AND EXTRA 2.5 ML
     Route: 050
     Dates: start: 20160421
  4. QUETIAPINA [Concomitant]
     Active Substance: QUETIAPINE
     Indication: PRODUCT USED FOR UNKNOWN INDICATION
     Route: 048

REACTIONS (5)
  - General physical health deterioration [Fatal]
  - Body temperature abnormal [Unknown]
  - Increased viscosity of upper respiratory secretion [Fatal]
  - Hyperthermia [Recovered/Resolved]
  - Decreased appetite [Fatal]

NARRATIVE: CASE EVENT DATE: 20210910
